FAERS Safety Report 20174571 (Version 1)
Quarter: 2021Q4

REPORT INFORMATION
  Report Type: Other
  Country: FR (occurrence: FR)
  Receive Date: 20211213
  Receipt Date: 20211213
  Transmission Date: 20220303
  Serious: Yes (Other)
  Sender: FDA-Public Use
  Company Number: FR-GW PHARMA-202112FRGW06018

PATIENT

DRUGS (4)
  1. CANNABIDIOL [Suspect]
     Active Substance: CANNABIDIOL
     Indication: Epilepsy
     Dosage: 300 MILLIGRAM, QD
     Route: 048
  2. CLOBAZAM [Suspect]
     Active Substance: CLOBAZAM
     Indication: Epilepsy
     Dosage: UNK, EVERY 12 HOURS
     Route: 048
  3. INOVELON [Suspect]
     Active Substance: RUFINAMIDE
     Indication: Epilepsy
     Dosage: 960 MILLIGRAM, QD
     Route: 048
  4. ZONISAMIDE [Suspect]
     Active Substance: ZONISAMIDE
     Indication: Epilepsy
     Dosage: 125 MILLIGRAM, QD
     Route: 048

REACTIONS (1)
  - Gingivitis [Not Recovered/Not Resolved]
